FAERS Safety Report 17194634 (Version 2)
Quarter: 2024Q1

REPORT INFORMATION
  Report Type: Spontaneous
  Country: GB (occurrence: GB)
  Receive Date: 20191224
  Receipt Date: 20240119
  Transmission Date: 20240409
  Serious: Yes (Hospitalization, Other)
  Sender: FDA-Public Use
  Company Number: GB-MHRA-MIDB-1BBD0052-605C-4FB3-AF07-E6664B8D69C0

PATIENT
  Age: 51 Year

DRUGS (4)
  1. MEBEVERINE [Suspect]
     Active Substance: MEBEVERINE
     Indication: Product used for unknown indication
     Dosage: UNK
     Route: 065
  2. ZOLEDRONIC ACID [Suspect]
     Active Substance: ZOLEDRONIC ACID
     Indication: Product used for unknown indication
     Dosage: UNK
     Route: 065
  3. LENALIDOMIDE [Suspect]
     Active Substance: LENALIDOMIDE
     Indication: Product used for unknown indication
     Dosage: UNK
     Route: 065
  4. WARFARIN [Suspect]
     Active Substance: WARFARIN
     Indication: Product used for unknown indication
     Dosage: UNK
     Route: 065

REACTIONS (1)
  - Pneumatosis intestinalis [Unknown]

NARRATIVE: CASE EVENT DATE: 20191120
